FAERS Safety Report 8343325-X (Version None)
Quarter: 2012Q2

REPORT INFORMATION
  Report Type: 
  Country: None (occurrence: None)
  Receive Date: 20120508
  Receipt Date: 20120503
  Transmission Date: 20120825
  Serious: Yes (Hospitalization)
  Sender: FDA-Public Use
  Company Number: PHHY2012IT035508

PATIENT
  Sex: Male

DRUGS (3)
  1. RISPERDAL [Suspect]
     Dosage: 60 MG, UNK
     Dates: start: 20111024, end: 20111024
  2. LORAZEPAM [Suspect]
     Dosage: 37.5 MG, UNK
     Route: 048
     Dates: start: 20111024, end: 20111024
  3. VENLAFAXINE [Suspect]
     Dosage: 375 MG, UNK
     Route: 048
     Dates: start: 20111024, end: 20111024

REACTIONS (4)
  - SUICIDE ATTEMPT [None]
  - SOPOR [None]
  - BLOOD PRESSURE INCREASED [None]
  - SELF INJURIOUS BEHAVIOUR [None]
